FAERS Safety Report 7053548-8 (Version None)
Quarter: 2010Q4

REPORT INFORMATION
  Report Type: 
  Country: None (occurrence: None)
  Receive Date: 20101020
  Receipt Date: 20101011
  Transmission Date: 20110411
  Serious: Yes (Hospitalization)
  Sender: FDA-Public Use
  Company Number: KP-ASTRAZENECA-2010SE47859

PATIENT
  Age: 9955 Day
  Sex: Male

DRUGS (6)
  1. CRESTOR [Suspect]
     Indication: HYPERLIPIDAEMIA
     Route: 048
     Dates: start: 20050613
  2. BEZALIB RETARD [Concomitant]
     Indication: HYPERLIPIDAEMIA
     Dates: start: 20050613, end: 20050730
  3. INTRON A [Concomitant]
     Indication: HEPATITIS B
     Dosage: 30 MU
     Dates: start: 20050613
  4. FURIX [Concomitant]
     Indication: GLOMERULONEPHRITIS
     Dates: start: 20050721
  5. SPIRODACTONE [Concomitant]
     Indication: GLOMERULONEPHRITIS
     Dates: start: 20050721
  6. ASPIRIN [Concomitant]
     Indication: GLOMERULONEPHRITIS
     Dates: start: 20050404

REACTIONS (1)
  - PYREXIA [None]
